FAERS Safety Report 15864118 (Version 1)
Quarter: 2019Q1

REPORT INFORMATION
  Report Type: Spontaneous
  Country: GB (occurrence: GB)
  Receive Date: 20190124
  Receipt Date: 20190124
  Transmission Date: 20190417
  Serious: Yes (Life-Threatening, Hospitalization, Disabling)
  Sender: FDA-Public Use
  Company Number: GB-JNJFOC-20190130478

PATIENT
  Age: 70 Year
  Sex: Male
  Weight: 82.55 kg

DRUGS (1)
  1. XARELTO [Suspect]
     Active Substance: RIVAROXABAN
     Indication: PULMONARY EMBOLISM
     Route: 048
     Dates: start: 20170725, end: 20170824

REACTIONS (6)
  - Cognitive disorder [Unknown]
  - Subarachnoid haemorrhage [Unknown]
  - Basilar artery aneurysm [Unknown]
  - Urinary incontinence [Unknown]
  - Vasospasm [Unknown]
  - Anal incontinence [Unknown]

NARRATIVE: CASE EVENT DATE: 20170824
